FAERS Safety Report 14525874 (Version 2)
Quarter: 2018Q1

REPORT INFORMATION
  Report Type: Spontaneous
  Country: US (occurrence: US)
  Receive Date: 20180213
  Receipt Date: 20180303
  Transmission Date: 20180509
  Serious: Yes (Other)
  Sender: FDA-Public Use
  Company Number: US-GLENMARK PHARMACEUTICALS-2018GMK031710

PATIENT

DRUGS (3)
  1. DORZOLAMIDE HCL [Concomitant]
     Active Substance: DORZOLAMIDE HYDROCHLORIDE
     Indication: GLAUCOMA
     Dosage: UNK, TID
     Route: 047
  2. OMEPRAZOLE. [Suspect]
     Active Substance: OMEPRAZOLE
     Indication: GASTROOESOPHAGEAL REFLUX DISEASE
     Dosage: 1 DF, OD
     Route: 048
     Dates: end: 20180125
  3. LEVOTHYROXINE. [Concomitant]
     Active Substance: LEVOTHYROXINE
     Indication: HYPOTHYROIDISM
     Dosage: UNK UNK, BID
     Route: 048

REACTIONS (3)
  - Dyspnoea [Recovered/Resolved]
  - Pain in extremity [Recovered/Resolved]
  - Thrombosis [Recovering/Resolving]
